FAERS Safety Report 25333726 (Version 1)
Quarter: 2025Q2

REPORT INFORMATION
  Report Type: Report from Study
  Country: US (occurrence: US)
  Receive Date: 20250520
  Receipt Date: 20250520
  Transmission Date: 20250717
  Serious: Yes (Other)
  Sender: MALLINCKRODT
  Company Number: US-MALLINCKRODT-MNK202502361

PATIENT
  Age: 62 Year
  Sex: Female
  Weight: 203 kg

DRUGS (11)
  1. CORTICOTROPIN [Suspect]
     Active Substance: CORTICOTROPIN
     Indication: Rheumatoid arthritis
     Dosage: 80 UNITS
     Route: 058
     Dates: start: 20250325
  2. CORTICOTROPIN [Suspect]
     Active Substance: CORTICOTROPIN
     Indication: Rheumatoid arthritis
  3. PREDNISONE [Concomitant]
     Active Substance: PREDNISONE
  4. PREDNISONE [Concomitant]
     Active Substance: PREDNISONE
  5. RITUXAN [Concomitant]
     Active Substance: RITUXIMAB
  6. PLAQUENIL [Concomitant]
     Active Substance: HYDROXYCHLOROQUINE SULFATE
  7. METHOTREXATE [Concomitant]
     Active Substance: METHOTREXATE
  8. ENBREL [Concomitant]
     Active Substance: ETANERCEPT
  9. VOLTAREN [Concomitant]
     Active Substance: DICLOFENAC SODIUM
  10. SYNTHROID [Concomitant]
     Active Substance: LEVOTHYROXINE SODIUM
  11. ARAVA [Concomitant]
     Active Substance: LEFLUNOMIDE

REACTIONS (12)
  - Rheumatoid arthritis [Unknown]
  - Dry skin [Unknown]
  - Skin discolouration [Unknown]
  - Skin striae [Unknown]
  - Pruritus [Unknown]
  - Pain in extremity [Unknown]
  - Weight increased [Unknown]
  - Headache [Unknown]
  - Injection site pain [Unknown]
  - Injection site pruritus [Unknown]
  - Injection site discolouration [Unknown]
  - Absence of immediate treatment response [Unknown]

NARRATIVE: CASE EVENT DATE: 20250101
